FAERS Safety Report 6055547-1 (Version None)
Quarter: 2009Q1

REPORT INFORMATION
  Report Type: 
  Country: None (occurrence: None)
  Receive Date: 20090128
  Receipt Date: 20090119
  Transmission Date: 20090719
  Serious: Yes (Hospitalization)
  Sender: FDA-Public Use
  Company Number: B0555080A

PATIENT
  Age: 69 Year
  Sex: Female

DRUGS (9)
  1. ZOVIRAX [Suspect]
     Route: 061
     Dates: start: 20080102, end: 20080102
  2. ACTIFED (FRANCE) [Suspect]
     Indication: RHINITIS
     Dosage: 9UNIT PER DAY
     Route: 048
     Dates: start: 20071227, end: 20071229
  3. PYOSTACINE [Suspect]
     Indication: IMPETIGO
     Route: 048
     Dates: start: 20071231
  4. SOLUPRED [Suspect]
     Route: 048
     Dates: start: 20071231
  5. EXOMUC [Suspect]
     Indication: DRUG USE FOR UNKNOWN INDICATION
     Route: 048
     Dates: start: 20080101, end: 20080101
  6. DERINOX [Suspect]
     Route: 045
     Dates: start: 20080102, end: 20080102
  7. BISEPTINE [Concomitant]
     Route: 065
     Dates: start: 20071201
  8. MUPIDERM [Concomitant]
     Route: 065
  9. BORIC ACID EYE WASHES [Concomitant]

REACTIONS (5)
  - DERMATITIS BULLOUS [None]
  - ERYTHEMA [None]
  - PURPURA [None]
  - SKIN LESION [None]
  - STAPHYLOCOCCAL INFECTION [None]
